FAERS Safety Report 24011480 (Version 2)
Quarter: 2024Q3

REPORT INFORMATION
  Report Type: Spontaneous
  Country: US (occurrence: US)
  Receive Date: 20240625
  Receipt Date: 20240725
  Transmission Date: 20241017
  Serious: Yes (Disabling, Other)
  Sender: GLAXOSMITHKLINE
  Company Number: US-GSKCCFUS-Case-02036466_AE-112917

PATIENT

DRUGS (1)
  1. BENLYSTA [Suspect]
     Active Substance: BELIMUMAB
     Indication: Systemic lupus erythematosus
     Dosage: UNK

REACTIONS (4)
  - Systemic lupus erythematosus [Unknown]
  - Bone pain [Not Recovered/Not Resolved]
  - Inability to afford medication [Unknown]
  - Product dose omission issue [Unknown]
